FAERS Safety Report 5131360-4 (Version None)
Quarter: 2006Q4

REPORT INFORMATION
  Report Type: 
  Country: None (occurrence: None)
  Receive Date: 20061016
  Receipt Date: 20061004
  Transmission Date: 20070319
  Serious: Yes (Hospitalization)
  Sender: FDA-Public Use
  Company Number: 234319K06USA

PATIENT
  Age: 62 Year
  Sex: Female

DRUGS (7)
  1. REBIF [Suspect]
     Indication: MULTIPLE SCLEROSIS
     Dosage: 44 MCG, 3 IN 1 WEEKS, SUBCUTANEOUS; 22 MCG; 8 MCG
     Route: 058
     Dates: start: 20060609, end: 20060101
  2. REBIF [Suspect]
     Indication: MULTIPLE SCLEROSIS
     Dosage: 44 MCG, 3 IN 1 WEEKS, SUBCUTANEOUS; 22 MCG; 8 MCG
     Route: 058
     Dates: start: 20060101, end: 20060706
  3. REBIF [Suspect]
     Indication: MULTIPLE SCLEROSIS
     Dosage: 44 MCG, 3 IN 1 WEEKS, SUBCUTANEOUS; 22 MCG; 8 MCG
     Route: 058
     Dates: start: 20060707, end: 20060709
  4. CYCLOBENZAPRINE HCL [Suspect]
     Dosage: 10 2 IN 1 DAYS, ORAL
     Route: 048
     Dates: start: 20060602, end: 20060708
  5. TYLENOL (COTYLENOL) [Concomitant]
  6. NITROFURANTOIN [Concomitant]
  7. MOTRN (IBUPROFEN) [Concomitant]

REACTIONS (9)
  - ABASIA [None]
  - CONFUSIONAL STATE [None]
  - DEHYDRATION [None]
  - FALL [None]
  - GAIT DISTURBANCE [None]
  - INCOHERENT [None]
  - INCONTINENCE [None]
  - LOSS OF CONSCIOUSNESS [None]
  - MENTAL DISORDER [None]
